FAERS Safety Report 9620173 (Version 1)
Quarter: 2013Q4

REPORT INFORMATION
  Report Type: Spontaneous
  Country: US (occurrence: US)
  Receive Date: 20131014
  Receipt Date: 20131014
  Transmission Date: 20140711
  Serious: Yes (Other)
  Sender: FDA-Public Use
  Company Number: US-RB-059387-13

PATIENT
  Age: 25 Year
  Sex: Female

DRUGS (3)
  1. SUBOXONE FILM [Suspect]
     Indication: DRUG DEPENDENCE
     Dosage: SUBOXONE FILM
     Route: 060
     Dates: start: 2011
  2. SUBOXONE FILM [Suspect]
     Dosage: SUBOXONE FILM
     Route: 060
     Dates: end: 201309
  3. SUBOXONE FILM [Suspect]
     Dosage: SUBOXONE FILM; SELF TAPERING DOSES
     Route: 060
     Dates: start: 201309, end: 20130930

REACTIONS (12)
  - Wrong technique in drug usage process [Recovered/Resolved]
  - Road traffic accident [Recovered/Resolved]
  - Patella fracture [Recovering/Resolving]
  - Cartilage injury [Recovering/Resolving]
  - Pleurisy [Recovering/Resolving]
  - Underdose [Recovered/Resolved]
  - Drug withdrawal syndrome [Not Recovered/Not Resolved]
  - Fatigue [Not Recovered/Not Resolved]
  - Hallucination, auditory [Not Recovered/Not Resolved]
  - Depression [Not Recovered/Not Resolved]
  - Pain [Not Recovered/Not Resolved]
  - Feeling of body temperature change [Not Recovered/Not Resolved]
